FAERS Safety Report 24727007 (Version 1)
Quarter: 2024Q4

REPORT INFORMATION
  Report Type: Spontaneous
  Country: BR (occurrence: BR)
  Receive Date: 20241212
  Receipt Date: 20241212
  Transmission Date: 20250114
  Serious: Yes (Other)
  Sender: ASTELLAS
  Company Number: BR-ASTELLAS-2024-AER-023123

PATIENT
  Sex: Male

DRUGS (1)
  1. XTANDI [Suspect]
     Active Substance: ENZALUTAMIDE
     Indication: Product used for unknown indication
     Route: 050

REACTIONS (2)
  - Disease progression [Unknown]
  - Feeling abnormal [Unknown]
